FAERS Safety Report 8950292 (Version 1)
Quarter: 2012Q4

REPORT INFORMATION
  Report Type: 
  Country: US (occurrence: US)
  Receive Date: 20121205
  Receipt Date: 20121205
  Transmission Date: 20130627
  Serious: Yes (Other)
  Sender: FDA-Public Use
  Company Number: US-ASTRAZENECA-2012SE89395

PATIENT
  Age: 89 Year
  Sex: Female

DRUGS (4)
  1. TOPROL XL [Suspect]
     Indication: HYPERTENSION
     Route: 048
  2. TOPROL XL [Suspect]
     Indication: HYPERTENSION
     Route: 048
     Dates: start: 201211
  3. SYNTHROID [Concomitant]
     Indication: THYROID DISORDER
     Route: 048
     Dates: start: 2002
  4. SYNTHROID [Concomitant]
     Indication: THYROID DISORDER
     Route: 048

REACTIONS (18)
  - Pulmonary embolism [Unknown]
  - Aneurysm [Unknown]
  - Fall [Unknown]
  - Muscular weakness [Unknown]
  - Weight decreased [Unknown]
  - Aphonia [Unknown]
  - Foot deformity [Unknown]
  - Rheumatoid arthritis [Unknown]
  - Sciatica [Unknown]
  - Chronic obstructive pulmonary disease [Unknown]
  - Gastrooesophageal reflux disease [Unknown]
  - Macular degeneration [Unknown]
  - Pain [Unknown]
  - Posture abnormal [Unknown]
  - Adverse event [Unknown]
  - Dizziness [Unknown]
  - Asthenia [Unknown]
  - Paraesthesia [Unknown]
